FAERS Safety Report 14533823 (Version 8)
Quarter: 2018Q4

REPORT INFORMATION
  Report Type: Spontaneous
  Country: US (occurrence: US)
  Receive Date: 20180215
  Receipt Date: 20181009
  Transmission Date: 20190204
  Serious: Yes (Hospitalization, Other)
  Sender: FDA-Public Use
  Company Number: US-BRISTOL-MYERS SQUIBB COMPANY-BMS-2018-013213

PATIENT
  Age: 66 Year
  Sex: Female

DRUGS (3)
  1. ORENCIA [Suspect]
     Active Substance: ABATACEPT
     Indication: RHEUMATOID ARTHRITIS
     Dosage: 125 MG, QWK
     Route: 058
     Dates: start: 201608
  2. FORTEO [Suspect]
     Active Substance: TERIPARATIDE
     Indication: PRODUCT USED FOR UNKNOWN INDICATION
     Dosage: UNK
     Route: 065
     Dates: start: 20180310
  3. FORTEO [Suspect]
     Active Substance: TERIPARATIDE
     Indication: PRODUCT USED FOR UNKNOWN INDICATION
     Dosage: UNK
     Route: 065
     Dates: start: 201803

REACTIONS (9)
  - Drug ineffective [Unknown]
  - Pulmonary oedema [Unknown]
  - Back pain [Unknown]
  - Lung disorder [Unknown]
  - Ankle fracture [Unknown]
  - Bronchitis [Unknown]
  - Urticaria [Not Recovered/Not Resolved]
  - Adverse event [Unknown]
  - Sinusitis [Unknown]

NARRATIVE: CASE EVENT DATE: 201803
